FAERS Safety Report 7133983-X (Version None)
Quarter: 2010Q4

REPORT INFORMATION
  Report Type: 
  Country: None (occurrence: None)
  Receive Date: 20101203
  Receipt Date: 20101122
  Transmission Date: 20110411
  Serious: Yes (Other)
  Sender: FDA-Public Use
  Company Number: AU-PFIZER INC-2010156252

PATIENT
  Sex: Female

DRUGS (7)
  1. EFFEXOR XR [Suspect]
     Indication: MAJOR DEPRESSION
     Dosage: 75 MG, 1X/DAY
     Dates: start: 20100901
  2. EFFEXOR XR [Suspect]
     Dosage: 300 MG, 1X/DAY
     Dates: start: 20101001
  3. OXYCONTIN [Concomitant]
     Dosage: 200 MG, 2X/DAY
  4. LYRICA [Concomitant]
     Dosage: 75 MG, 2X/DAY
  5. LIPITOR [Concomitant]
     Dosage: 40 MG, 1X/DAY
  6. RAMIPRIL [Concomitant]
     Dosage: 10 MG, 1X/DAY
  7. CARTIA XT [Concomitant]
     Dosage: UNK

REACTIONS (1)
  - LARYNGOSPASM [None]
